FAERS Safety Report 14924778 (Version 1)
Quarter: 2018Q2

REPORT INFORMATION
  Report Type: Spontaneous
  Country: US (occurrence: US)
  Receive Date: 20180522
  Receipt Date: 20180522
  Transmission Date: 20180711
  Serious: Yes (Death, Other)
  Sender: FDA-Public Use
  Company Number: US-ABBVIE-18K-163-2361437-00

PATIENT
  Age: 58 Year
  Sex: Male

DRUGS (1)
  1. HUMIRA [Suspect]
     Active Substance: ADALIMUMAB
     Indication: PSORIASIS
     Route: 058
     Dates: start: 2013, end: 2013

REACTIONS (11)
  - B-cell lymphoma [Fatal]
  - Medical induction of coma [Unknown]
  - Rash [Unknown]
  - Radiotherapy [Unknown]
  - Radiation injury [Unknown]
  - Hypophagia [Unknown]
  - Disability [Unknown]
  - Tumour ulceration [Unknown]
  - Radiation necrosis [Unknown]
  - Pain of skin [Unknown]
  - Pain [Unknown]

NARRATIVE: CASE EVENT DATE: 2013
